FAERS Safety Report 12315093 (Version 1)
Quarter: 2016Q2

REPORT INFORMATION
  Report Type: Spontaneous
  Country: US (occurrence: US)
  Receive Date: 20160428
  Receipt Date: 20160428
  Transmission Date: 20160815
  Serious: No
  Sender: FDA-Public Use
  Company Number: US-MALLINCKRODT-T201502501

PATIENT
  Age: 25 Year
  Sex: Male
  Weight: 90.7 kg

DRUGS (1)
  1. METHYLIN [Suspect]
     Active Substance: METHYLPHENIDATE HYDROCHLORIDE
     Indication: ATTENTION DEFICIT/HYPERACTIVITY DISORDER
     Dosage: 20 MG, 2 TABS TWICE DAILY
     Route: 048
     Dates: start: 20150507, end: 20150507

REACTIONS (4)
  - Agitation [Unknown]
  - Drug ineffective [Recovered/Resolved]
  - Drug effect decreased [Recovered/Resolved]
  - Dizziness [Recovered/Resolved]

NARRATIVE: CASE EVENT DATE: 20150507
